FAERS Safety Report 25435928 (Version 1)
Quarter: 2025Q2

REPORT INFORMATION
  Report Type: Spontaneous
  Country: CN (occurrence: CN)
  Receive Date: 20250613
  Receipt Date: 20250613
  Transmission Date: 20250716
  Serious: Yes (Other)
  Sender: ELI LILLY AND COMPANY
  Company Number: CN-ELI_LILLY_AND_COMPANY-CN202506009672

PATIENT
  Age: 59 Year
  Sex: Male

DRUGS (5)
  1. GEMCITABINE HYDROCHLORIDE [Suspect]
     Active Substance: GEMCITABINE HYDROCHLORIDE
     Indication: Angiocentric lymphoma
     Route: 065
  2. DEXAMETHASONE [Suspect]
     Active Substance: DEXAMETHASONE
     Indication: Angiocentric lymphoma
     Route: 065
  3. CISPLATIN [Suspect]
     Active Substance: CISPLATIN
     Indication: Angiocentric lymphoma
     Route: 065
  4. METHOTREXATE [Suspect]
     Active Substance: METHOTREXATE
     Indication: Angiocentric lymphoma
     Route: 042
  5. PEGASPARGASE [Suspect]
     Active Substance: PEGASPARGASE
     Indication: Angiocentric lymphoma
     Route: 065

REACTIONS (21)
  - Urinary retention [Unknown]
  - Agranulocytosis [Unknown]
  - Infection [Unknown]
  - Dizziness [Unknown]
  - Breath sounds abnormal [Unknown]
  - Sputum abnormal [Unknown]
  - Hypoacusis [Unknown]
  - Dysarthria [Unknown]
  - Blood creatinine increased [Unknown]
  - Hypertonia [Unknown]
  - Hyperreflexia [Unknown]
  - Hypotonia [Unknown]
  - Areflexia [Unknown]
  - Sensory loss [Unknown]
  - Somnolence [Unknown]
  - Nuchal rigidity [Unknown]
  - Headache [Unknown]
  - Nausea [Unknown]
  - Vomiting [Unknown]
  - Off label use [Unknown]
  - Muscular weakness [Unknown]
